FAERS Safety Report 12177436 (Version 3)
Quarter: 2016Q1

REPORT INFORMATION
  Report Type: Spontaneous
  Country: US (occurrence: US)
  Receive Date: 20160315
  Receipt Date: 20160325
  Transmission Date: 20160526
  Serious: Yes (Other)
  Sender: FDA-Public Use
  Company Number: US-AMGEN-USASP2016031290

PATIENT
  Age: 69 Year
  Sex: Female

DRUGS (3)
  1. NEULASTA [Suspect]
     Active Substance: PEGFILGRASTIM
     Indication: WHITE BLOOD CELL COUNT DECREASED
     Dosage: UNK
     Route: 065
  2. DOXORUBICIN [Concomitant]
     Active Substance: DOXORUBICIN
     Indication: BREAST CANCER
     Dosage: UNK
     Dates: start: 20160210
  3. CYCLOPHOSPHAMIDE. [Concomitant]
     Active Substance: CYCLOPHOSPHAMIDE
     Indication: BREAST CANCER
     Dosage: UNK
     Dates: start: 20160210

REACTIONS (14)
  - Lymphadenectomy [Unknown]
  - Anaphylactic shock [Recovering/Resolving]
  - Application site reaction [Unknown]
  - Body temperature increased [Unknown]
  - Anaphylactic reaction [Unknown]
  - Decubitus ulcer [Unknown]
  - Productive cough [Unknown]
  - Dysphonia [Unknown]
  - Urticaria [Unknown]
  - Hallucination [Unknown]
  - Dental prosthesis user [Unknown]
  - Herpes zoster [Unknown]
  - Device adhesion issue [Unknown]
  - Rhinorrhoea [Unknown]

NARRATIVE: CASE EVENT DATE: 2016
